FAERS Safety Report 8811210 (Version 6)
Quarter: 2012Q4

REPORT INFORMATION
  Report Type: 
  Country: CA (occurrence: CA)
  Receive Date: 20120927
  Receipt Date: 20121030
  Transmission Date: 20130627
  Serious: Yes (Hospitalization, Other)
  Sender: FDA-Public Use
  Company Number: PHHY2012CA083545

PATIENT
  Sex: Female

DRUGS (1)
  1. ZOMETA [Suspect]
     Indication: RENAL CELL CARCINOMA
     Dosage: 3.5 mg, every 8 weeks
     Route: 042
     Dates: start: 20120323

REACTIONS (7)
  - Fluid retention [Not Recovered/Not Resolved]
  - Blood pressure decreased [Unknown]
  - Pulse pressure decreased [Unknown]
  - Heart rate decreased [Unknown]
  - Pallor [Unknown]
  - Feeling cold [Unknown]
  - Asthenia [Unknown]
